FAERS Safety Report 11912204 (Version 1)
Quarter: 2016Q1

REPORT INFORMATION
  Report Type: Spontaneous
  Country: US (occurrence: US)
  Receive Date: 20160112
  Receipt Date: 20160112
  Transmission Date: 20160526
  Serious: Yes (Other)
  Sender: FDA-Public Use
  Company Number: US-BRISTOL-MYERS SQUIBB COMPANY-BMS-2015-092820

PATIENT
  Age: 61 Year
  Sex: Female

DRUGS (1)
  1. SPRYCEL [Suspect]
     Active Substance: DASATINIB
     Indication: PSORIASIS
     Dosage: 1 DF, QD
     Route: 065

REACTIONS (3)
  - Type 2 diabetes mellitus [Unknown]
  - Off label use [Unknown]
  - Nasopharyngitis [Unknown]
